FAERS Safety Report 18568570 (Version 5)
Quarter: 2021Q1

REPORT INFORMATION
  Report Type: Spontaneous
  Country: US (occurrence: US)
  Receive Date: 20201202
  Receipt Date: 20210316
  Transmission Date: 20210419
  Serious: No
  Sender: FDA-Public Use
  Company Number: US-LUPIN PHARMACEUTICALS INC.-2020-09301

PATIENT
  Age: 75 Year
  Sex: Female
  Weight: 90.25 kg

DRUGS (4)
  1. MOXIFLOXACIN HYDROCHLORIDE OPHTHALMIC SOLUTION USP, 0.5% [Suspect]
     Active Substance: MOXIFLOXACIN HYDROCHLORIDE
     Indication: CATARACT OPERATION
     Dosage: 1 DROP, SINGLE
     Route: 047
     Dates: start: 20201109, end: 20201109
  2. PROLENSA [Concomitant]
     Active Substance: BROMFENAC SODIUM
     Indication: CATARACT OPERATION
     Dosage: UNK
     Route: 047
  3. LOTEMAX [Concomitant]
     Active Substance: LOTEPREDNOL ETABONATE
     Indication: CATARACT OPERATION
     Dosage: UNK
     Route: 047
  4. TOBRADEX [Concomitant]
     Active Substance: DEXAMETHASONE\TOBRAMYCIN
     Indication: CATARACT OPERATION
     Dosage: UNK
     Route: 047

REACTIONS (4)
  - Eye irritation [Recovering/Resolving]
  - Eye pain [Recovering/Resolving]
  - Ocular hyperaemia [Recovering/Resolving]
  - Product quality issue [Unknown]

NARRATIVE: CASE EVENT DATE: 20201109
